FAERS Safety Report 5811725-5 (Version None)
Quarter: 2008Q3

REPORT INFORMATION
  Report Type: 
  Country: None (occurrence: None)
  Receive Date: 20080716
  Receipt Date: 20080710
  Transmission Date: 20090109
  Serious: Yes (Life-Threatening, Hospitalization)
  Sender: FDA-Public Use
  Company Number: B0493573A

PATIENT
  Age: 64 Year
  Sex: Female

DRUGS (8)
  1. PAXIL [Suspect]
     Indication: DEPRESSION
     Dosage: 20MG PER DAY
     Route: 048
     Dates: start: 20071016, end: 20071023
  2. LEVOTHYROXINE SODIUM [Concomitant]
     Indication: HYPOTHYROIDISM
     Dosage: 25MCG PER DAY
     Route: 048
     Dates: start: 20071016
  3. NORVASC [Concomitant]
     Indication: HYPERTENSION
     Dosage: 5MG PER DAY
     Route: 048
     Dates: start: 20071016
  4. ASPIRIN [Concomitant]
     Indication: PROPHYLAXIS
     Dosage: 100MG PER DAY
     Route: 048
     Dates: start: 20071016
  5. MEVALOTIN [Concomitant]
     Dosage: 10MG PER DAY
     Route: 048
     Dates: start: 20071016
  6. BASEN [Concomitant]
     Indication: DIABETES MELLITUS
     Dosage: .2MG PER DAY
     Route: 048
     Dates: start: 20071016
  7. NOVOLIN N [Concomitant]
     Indication: DIABETES MELLITUS
     Dosage: 4IU PER DAY
     Route: 058
     Dates: start: 20071016
  8. NOVORAPID [Concomitant]
     Indication: DIABETES MELLITUS
     Route: 058
     Dates: start: 20071016

REACTIONS (13)
  - ACTIVATION SYNDROME [None]
  - AKATHISIA [None]
  - ANGER [None]
  - ANXIETY [None]
  - DEPRESSED LEVEL OF CONSCIOUSNESS [None]
  - DISINHIBITION [None]
  - IMPULSIVE BEHAVIOUR [None]
  - INSOMNIA [None]
  - IRRITABILITY [None]
  - NAUSEA [None]
  - SPEECH DISORDER [None]
  - SUICIDE ATTEMPT [None]
  - VERBAL ABUSE [None]
